FAERS Safety Report 7077598 (Version 2)
Quarter: 2013Q4

REPORT INFORMATION
  Report Type: Spontaneous
  Country: US (occurrence: None)
  Receive Date: 20090803
  Receipt Date: 20131226
  Transmission Date: 20140711
  Serious: Yes (Other)
  Sender: FDA-Public Use
  Company Number: 2009S1005767

PATIENT
  Age: 48 Year
  Sex: Female
  Weight: 63.05 kg

DRUGS (3)
  1. FLEET PHOSPHO-SODA [Suspect]
     Indication: COLONOSCOPY
     Dosage: PO
     Route: 048
     Dates: start: 20071115, end: 20071115
  2. ASACOL (MESALAZINE) MODIFIED-RELEASE TABLET, 400 MG [Concomitant]
  3. 6-MP (MERCAPTOPURINE) [Concomitant]

REACTIONS (8)
  - Renal failure [None]
  - Stag horn calculus [None]
  - Hydronephrosis [None]
  - Renal atrophy [None]
  - Pyelonephritis acute [None]
  - Pyelonephritis chronic [None]
  - Kidney fibrosis [None]
  - Glomerulosclerosis [None]
